FAERS Safety Report 5001325-1 (Version None)
Quarter: 2006Q2

REPORT INFORMATION
  Report Type: 
  Country: None (occurrence: None)
  Receive Date: 20060512
  Receipt Date: 20060503
  Transmission Date: 20061013
  Serious: Yes (Hospitalization)
  Sender: FDA-Public Use
  Company Number: US-MERCK-0605USA00840

PATIENT
  Age: 64 Year
  Sex: Male
  Weight: 107 kg

DRUGS (6)
  1. VIOXX [Suspect]
     Indication: BACK PAIN
     Route: 048
     Dates: start: 20030401, end: 20040801
  2. ASPIRIN [Concomitant]
     Route: 065
  3. ZOCOR [Concomitant]
     Route: 065
  4. VIAGRA [Concomitant]
     Route: 065
  5. INDOMETHACIN [Concomitant]
     Route: 065
  6. ADVIL [Concomitant]
     Route: 065

REACTIONS (1)
  - MYOCARDIAL INFARCTION [None]
